FAERS Safety Report 25878286 (Version 1)
Quarter: 2025Q3

REPORT INFORMATION
  Report Type: Spontaneous
  Country: US (occurrence: None)
  Receive Date: 20250930
  Receipt Date: 20250930
  Transmission Date: 20251020
  Serious: Yes (Life-Threatening)
  Sender: FDA-CTU
  Company Number: None

PATIENT
  Age: 66 Year
  Sex: Male
  Weight: 60.75 kg

DRUGS (5)
  1. DIETARY SUPPLEMENT [Suspect]
     Active Substance: DIETARY SUPPLEMENT
     Indication: Dyspnoea
     Dates: start: 20250914, end: 20250914
  2. ALBUTEROL [Concomitant]
     Active Substance: ALBUTEROL
  3. COPD steroids [Concomitant]
  4. LUTEIN [Concomitant]
     Active Substance: LUTEIN
  5. ZEAXANTHIN [Concomitant]
     Active Substance: ZEAXANTHIN

REACTIONS (2)
  - Dyspnoea [None]
  - Dyspnoea [None]

NARRATIVE: CASE EVENT DATE: 20250914
